FAERS Safety Report 5760110-3 (Version None)
Quarter: 2008Q2

REPORT INFORMATION
  Report Type: 
  Country: None (occurrence: None)
  Receive Date: 20080605
  Receipt Date: 20080529
  Transmission Date: 20081010
  Serious: Yes (Hospitalization)
  Sender: FDA-Public Use
  Company Number: US-GENENTECH-262033

PATIENT
  Age: 73 Year
  Sex: Female

DRUGS (2)
  1. RITUXAN [Suspect]
     Indication: NON-HODGKIN'S LYMPHOMA
     Dosage: UNK, X4
     Route: 042
     Dates: start: 20020101
  2. RITUXAN [Suspect]
     Dosage: UNK, Q3M
     Route: 042
     Dates: start: 20020101, end: 20080404

REACTIONS (1)
  - CEREBROVASCULAR ACCIDENT [None]
